FAERS Safety Report 13851470 (Version 1)
Quarter: 2017Q3

REPORT INFORMATION
  Report Type: Report from Study
  Country: GB (occurrence: GB)
  Receive Date: 20170809
  Receipt Date: 20170809
  Transmission Date: 20171127
  Serious: Yes (Hospitalization)
  Sender: FDA-Public Use
  Company Number: GB-JNJFOC-20170425363

PATIENT
  Age: 80 Year
  Sex: Female

DRUGS (1)
  1. IMBRUVICA [Suspect]
     Active Substance: IBRUTINIB
     Indication: CHRONIC LYMPHOCYTIC LEUKAEMIA
     Route: 048
     Dates: start: 20161011

REACTIONS (11)
  - Pneumonia [Recovered/Resolved]
  - Blood potassium decreased [Recovered/Resolved]
  - Tremor [Unknown]
  - Depression [Not Recovered/Not Resolved]
  - Incorrect dose administered [Unknown]
  - Back pain [Not Recovered/Not Resolved]
  - Poor quality sleep [Not Recovered/Not Resolved]
  - Social avoidant behaviour [Not Recovered/Not Resolved]
  - Infection [Recovering/Resolving]
  - Off label use [Unknown]
  - Dizziness [Unknown]

NARRATIVE: CASE EVENT DATE: 20161011
